FAERS Safety Report 4741248-6 (Version None)
Quarter: 2005Q3

REPORT INFORMATION
  Report Type: 
  Country: None (occurrence: None)
  Receive Date: 20050810
  Receipt Date: 20041216
  Transmission Date: 20060218
  Serious: No
  Sender: FDA-Public Use
  Company Number: US-GLAXOSMITHKLINE-A0538113A

PATIENT
  Age: 23 Year
  Sex: Female

DRUGS (2)
  1. PAXIL [Suspect]
     Indication: MAJOR DEPRESSION
     Dosage: 20MG IN THE MORNING
     Route: 048
     Dates: start: 20001012
  2. DESYREL [Concomitant]
     Route: 048

REACTIONS (1)
  - DRUG WITHDRAWAL SYNDROME [None]
